FAERS Safety Report 9932744 (Version 1)
Quarter: 2014Q1

REPORT INFORMATION
  Report Type: Spontaneous
  Country: US (occurrence: US)
  Receive Date: 20140228
  Receipt Date: 20140228
  Transmission Date: 20141002
  Serious: No
  Sender: FDA-Public Use
  Company Number: US-GLAXOSMITHKLINE-A1033955A

PATIENT
  Age: 32 Year
  Sex: Female

DRUGS (8)
  1. IMITREX [Suspect]
     Indication: MIGRAINE
     Route: 058
     Dates: start: 201202
  2. IMITREX [Suspect]
     Indication: MIGRAINE
     Route: 048
  3. AMITRIPTYLINE [Concomitant]
  4. PROPRANOLOL [Concomitant]
  5. EXCEDRIN [Concomitant]
  6. TYLENOL [Concomitant]
  7. SEROQUEL [Concomitant]
  8. OMEPRAZOLE [Concomitant]

REACTIONS (1)
  - Drug ineffective [Unknown]
